FAERS Safety Report 14161930 (Version 2)
Quarter: 2017Q4

REPORT INFORMATION
  Report Type: Spontaneous
  Country: JP (occurrence: JP)
  Receive Date: 20171106
  Receipt Date: 20171207
  Transmission Date: 20180321
  Serious: Yes (Hospitalization)
  Sender: FDA-Public Use
  Company Number: JP-NOVOPROD-570696

PATIENT
  Age: 84 Year
  Sex: Male
  Weight: 58 kg

DRUGS (2)
  1. NOVORAPID [Suspect]
     Active Substance: INSULIN ASPART
     Dosage: 1200 IU, SINGLE
     Route: 058
     Dates: start: 20171017, end: 201710
  2. NOVORAPID [Suspect]
     Active Substance: INSULIN ASPART
     Indication: TYPE 2 DIABETES MELLITUS
     Dosage: 13 IU, QD (JUST BEFORE BREAKFAST)
     Route: 058

REACTIONS (3)
  - Intentional overdose [Unknown]
  - Hypoglycaemia [Recovering/Resolving]
  - Suicide attempt [Unknown]

NARRATIVE: CASE EVENT DATE: 20171017
